FAERS Safety Report 5967582-X (Version None)
Quarter: 2008Q4

REPORT INFORMATION
  Report Type: 
  Country: None (occurrence: None)
  Receive Date: 20081125
  Receipt Date: 20081107
  Transmission Date: 20090506
  Serious: Yes (Disabling)
  Sender: FDA-Public Use
  Company Number: JP-PFIZER INC-2008099117

PATIENT
  Age: 60 Year
  Sex: Female

DRUGS (12)
  1. AMLODIN [Suspect]
  2. SELECTOL [Interacting]
  3. PYRAZINAMIDE [Interacting]
     Indication: DISSEMINATED TUBERCULOSIS
     Dates: start: 20070201, end: 20070501
  4. RIFADIN [Interacting]
     Indication: DISSEMINATED TUBERCULOSIS
     Dates: start: 20070201, end: 20070501
  5. RIFADIN [Interacting]
     Dates: start: 20070701
  6. ISCOTIN [Interacting]
     Indication: DISSEMINATED TUBERCULOSIS
     Dates: start: 20070201, end: 20070501
  7. ISCOTIN [Interacting]
     Dates: start: 20070701
  8. ACECOL [Interacting]
     Indication: HYPERTENSION
  9. ARTIST [Interacting]
     Indication: HYPERTENSION
  10. ETHAMBUTOL HYDROCHLORIDE [Concomitant]
     Dates: start: 20070201, end: 20070501
  11. ETHAMBUTOL HYDROCHLORIDE [Concomitant]
     Dates: start: 20070701
  12. STREPTOMYCIN [Concomitant]
     Indication: DISSEMINATED TUBERCULOSIS
     Dates: start: 20070501

REACTIONS (3)
  - BLOOD PRESSURE INADEQUATELY CONTROLLED [None]
  - DRUG INTERACTION [None]
  - HEPATIC FAILURE [None]
